FAERS Safety Report 14817261 (Version 2)
Quarter: 2018Q2

REPORT INFORMATION
  Report Type: Report from Study
  Country: LB (occurrence: LB)
  Receive Date: 20180426
  Receipt Date: 20180504
  Transmission Date: 20180711
  Serious: Yes (Hospitalization)
  Sender: FDA-Public Use
  Company Number: PHHY2018LB073787

PATIENT
  Sex: Male

DRUGS (3)
  1. TASIGNA [Suspect]
     Active Substance: NILOTINIB
     Indication: CHRONIC MYELOID LEUKAEMIA
     Dosage: 600 MG, QD
     Route: 048
     Dates: start: 201405
  2. TASIGNA [Suspect]
     Active Substance: NILOTINIB
     Dosage: UNK UNK, BID (6 AM AND 6 PM)
     Route: 048
  3. PANADOL [Concomitant]
     Active Substance: ACETAMINOPHEN
     Indication: PRODUCT USED FOR UNKNOWN INDICATION
     Dosage: (SOS), PRN
     Route: 048

REACTIONS (4)
  - Vitamin D decreased [Unknown]
  - Blood iron decreased [Unknown]
  - Blood potassium decreased [Unknown]
  - Urinary tract infection [Recovered/Resolved]
